FAERS Safety Report 5672150-3 (Version None)
Quarter: 2008Q1

REPORT INFORMATION
  Report Type: 
  Country: None (occurrence: None)
  Receive Date: 20080319
  Receipt Date: 20080310
  Transmission Date: 20080703
  Serious: Yes (Hospitalization, Other)
  Sender: FDA-Public Use
  Company Number: US-JNJFOC-20080205840

PATIENT
  Sex: Female
  Weight: 81.65 kg

DRUGS (13)
  1. REMICADE [Suspect]
     Route: 042
  2. REMICADE [Suspect]
     Route: 042
  3. REMICADE [Suspect]
     Indication: COLITIS ULCERATIVE
     Dosage: 1 INFUSION IN 2002
     Route: 042
  4. COLAZAL [Concomitant]
     Route: 048
  5. PREDNISONE [Concomitant]
     Route: 048
  6. LEVSIN [Concomitant]
     Route: 060
  7. ROBINUL [Concomitant]
  8. PREDNISONE [Concomitant]
     Indication: PREMEDICATION
  9. NEXIUM [Concomitant]
     Indication: DYSPEPSIA
  10. GLYCOPYROLATE [Concomitant]
  11. PREDNSIONE [Concomitant]
     Indication: PREMEDICATION
  12. BENADRYL [Concomitant]
     Indication: PREMEDICATION
  13. TYLENOL (CAPLET) [Concomitant]
     Indication: PREMEDICATION

REACTIONS (8)
  - ABDOMINAL PAIN UPPER [None]
  - CHEST PAIN [None]
  - DYSPNOEA [None]
  - HEART RATE INCREASED [None]
  - HEPATIC CIRRHOSIS [None]
  - HYPERTENSION [None]
  - PAIN [None]
  - RASH [None]
